FAERS Safety Report 5048083-2 (Version None)
Quarter: 2006Q2

REPORT INFORMATION
  Report Type: 
  Country: None (occurrence: None)
  Receive Date: 20060601
  Receipt Date: 20060307
  Transmission Date: 20061013
  Serious: No
  Sender: FDA-Public Use
  Company Number: 2006PV009854

PATIENT
  Age: 59 Year
  Sex: Female
  Weight: 90.7194 kg

DRUGS (3)
  1. BYETTA [Suspect]
     Indication: DIABETES MELLITUS NON-INSULIN-DEPENDENT
     Dosage: 5 MCG; BID; SC
     Route: 058
     Dates: start: 20060226, end: 20060304
  2. GLIPIZIDE [Concomitant]
  3. METFORMIN [Concomitant]

REACTIONS (5)
  - ASTHENIA [None]
  - HYPERSOMNIA [None]
  - INCOHERENT [None]
  - SEDATION [None]
  - TREMOR [None]
